FAERS Safety Report 9065780 (Version 2)
Quarter: 2013Q2

REPORT INFORMATION
  Report Type: Spontaneous
  Country: US (occurrence: US)
  Receive Date: 20130214
  Receipt Date: 20130513
  Transmission Date: 20140414
  Serious: Yes (Hospitalization, Other)
  Sender: FDA-Public Use
  Company Number: US-BAYER-2013-018068

PATIENT
  Age: 29 Year
  Sex: Female
  Weight: 108.84 kg

DRUGS (8)
  1. YAZ [Suspect]
     Dosage: UNK
     Dates: start: 2010, end: 2012
  2. YASMIN [Suspect]
     Dosage: UNK
     Dates: start: 2010, end: 2012
  3. OCELLA [Suspect]
     Dosage: UNK
     Dates: start: 2010, end: 2012
  4. MOTRIN [Concomitant]
     Dosage: 600 MG, PRN EVERY 6 HOURS
     Route: 048
  5. VALIUM [Concomitant]
     Dosage: 5 MG, TID PRN
     Route: 048
  6. HYDROCODONE W/ACETAMINOPHEN [Concomitant]
     Dosage: 5MG-325 MG 1 TABLET EVERY 4 HOURS PRN
     Route: 048
  7. PRENATAL [FOLIC ACID,IRON] [Concomitant]
     Dosage: 1 TABLET EVERY DAY
     Route: 048
  8. NORCO [Concomitant]

REACTIONS (11)
  - Deep vein thrombosis [None]
  - Injury [None]
  - Pain [None]
  - General physical health deterioration [None]
  - Abdominal pain [None]
  - Off label use [None]
  - Emotional distress [None]
  - Anxiety [None]
  - Pain [None]
  - Pulmonary embolism [None]
  - Pulmonary embolism [None]
